FAERS Safety Report 11847294 (Version 1)
Quarter: 2015Q4

REPORT INFORMATION
  Report Type: Spontaneous
  Country: US (occurrence: US)
  Receive Date: 20151217
  Receipt Date: 20151217
  Transmission Date: 20160305
  Serious: No
  Sender: FDA-Public Use
  Company Number: US-ROCHE-1532235

PATIENT
  Age: 13 Year
  Sex: Female
  Weight: 40.86 kg

DRUGS (1)
  1. TAMIFLU [Suspect]
     Active Substance: OSELTAMIVIR PHOSPHATE
     Indication: INFLUENZA
     Dosage: ONE DOSE
     Route: 065

REACTIONS (3)
  - Confusional state [Unknown]
  - Feeling guilty [Unknown]
  - Ill-defined disorder [Unknown]
